FAERS Safety Report 9450998 (Version 2)
Quarter: 2013Q4

REPORT INFORMATION
  Report Type: Spontaneous
  Country: US (occurrence: US)
  Receive Date: 20130809
  Receipt Date: 20131017
  Transmission Date: 20140711
  Serious: Yes (Other)
  Sender: FDA-Public Use
  Company Number: US-CELGENEUS-163-21880-13071599

PATIENT
  Age: 75 Year
  Sex: Male
  Weight: 79.2 kg

DRUGS (12)
  1. REVLIMID [Suspect]
     Indication: MYELODYSPLASTIC SYNDROME
     Dosage: 10 MILLIGRAM
     Route: 048
     Dates: start: 20120627
  2. BABY ASPIRIN [Concomitant]
     Indication: PRODUCT USED FOR UNKNOWN INDICATION
     Route: 065
  3. BENADRYL [Concomitant]
     Indication: PRODUCT USED FOR UNKNOWN INDICATION
     Route: 065
  4. LOMOTIL [Concomitant]
     Indication: PRODUCT USED FOR UNKNOWN INDICATION
     Route: 065
  5. MEVACOR [Concomitant]
     Indication: PRODUCT USED FOR UNKNOWN INDICATION
     Route: 048
  6. MULTIVITAMINS [Concomitant]
     Indication: PRODUCT USED FOR UNKNOWN INDICATION
     Route: 065
  7. PROCRIT [Concomitant]
     Indication: PRODUCT USED FOR UNKNOWN INDICATION
     Dosage: 40,000 UNITS
     Route: 065
     Dates: start: 20120627, end: 20120627
  8. ALKA-SELTZER [Concomitant]
     Indication: NASOPHARYNGITIS
     Route: 065
  9. NASAL SPRAY [Concomitant]
     Indication: NASOPHARYNGITIS
     Route: 045
  10. TYLENOL [Concomitant]
     Indication: NASOPHARYNGITIS
     Route: 045
  11. COUGH MEDICINE [Concomitant]
     Indication: COUGH
     Route: 048
  12. TRANSFUSION [Concomitant]
     Indication: PRODUCT USED FOR UNKNOWN INDICATION
     Route: 065
     Dates: end: 201207

REACTIONS (3)
  - Renal cyst [Unknown]
  - Rash [Recovered/Resolved]
  - Fatigue [Unknown]
